FAERS Safety Report 7864055-4 (Version None)
Quarter: 2011Q4

REPORT INFORMATION
  Report Type: 
  Country: None (occurrence: None)
  Receive Date: 20111028
  Receipt Date: 20111025
  Transmission Date: 20120403
  Serious: Yes (Hospitalization)
  Sender: FDA-Public Use
  Company Number: US-JNJFOC-20111011132

PATIENT
  Sex: Female
  Weight: 61.24 kg

DRUGS (3)
  1. COUMADIN [Concomitant]
     Indication: THROMBOSIS
     Route: 048
     Dates: start: 19990101
  2. ATENOLOL [Concomitant]
     Indication: BLOOD PRESSURE
     Route: 048
     Dates: start: 19990101
  3. LEVAQUIN [Suspect]
     Indication: URINARY TRACT INFECTION
     Route: 048
     Dates: start: 20080101, end: 20080101

REACTIONS (3)
  - MALAISE [None]
  - HALLUCINATION [None]
  - HYPERSENSITIVITY [None]
